FAERS Safety Report 5065746-3 (Version None)
Quarter: 2006Q3

REPORT INFORMATION
  Report Type: 
  Country: None (occurrence: None)
  Receive Date: 20060731
  Receipt Date: 20060526
  Transmission Date: 20061208
  Serious: Yes (Disabling)
  Sender: FDA-Public Use
  Company Number: GB-ROCHE-451414

PATIENT
  Age: 25 Year
  Sex: Male

DRUGS (6)
  1. LARIAM [Suspect]
     Indication: MALARIA PROPHYLAXIS
     Route: 048
     Dates: start: 20030815, end: 20041015
  2. LARIAM [Suspect]
     Route: 048
     Dates: start: 20050215, end: 20050715
  3. LARIAM [Suspect]
     Route: 048
     Dates: start: 20060315, end: 20060515
  4. ARTESUNATE [Concomitant]
     Indication: MALARIA PROPHYLAXIS
     Route: 048
     Dates: start: 20031015, end: 20040915
  5. CHLOROQUINE PHOSPHATE [Concomitant]
     Indication: MALARIA PROPHYLAXIS
     Route: 048
     Dates: start: 20040315
  6. DOXYCYCLINE HCL [Concomitant]
     Dates: start: 20040315, end: 20040315

REACTIONS (19)
  - ABDOMINAL PAIN [None]
  - AMNESIA [None]
  - ANXIETY [None]
  - ASTHENIA [None]
  - BEDRIDDEN [None]
  - CONFUSIONAL STATE [None]
  - DEPRESSION [None]
  - DIARRHOEA [None]
  - DISEASE RECURRENCE [None]
  - FATIGUE [None]
  - FEELING ABNORMAL [None]
  - MOOD SWINGS [None]
  - MUSCULOSKELETAL PAIN [None]
  - MYALGIA [None]
  - NAUSEA [None]
  - PHARYNGOLARYNGEAL PAIN [None]
  - STOMACH DISCOMFORT [None]
  - THINKING ABNORMAL [None]
  - TREMOR [None]
